FAERS Safety Report 5780457-4 (Version None)
Quarter: 2008Q2

REPORT INFORMATION
  Report Type: 
  Country: None (occurrence: None)
  Receive Date: 20080620
  Receipt Date: 20080618
  Transmission Date: 20081010
  Serious: Yes (Disabling, Other)
  Sender: FDA-Public Use
  Company Number: CA-BRISTOL-MYERS SQUIBB COMPANY-14048755

PATIENT
  Age: 43 Year
  Sex: Female

DRUGS (13)
  1. ORENCIA [Suspect]
     Indication: RHEUMATOID ARTHRITIS
     Dosage: INFUSION DATES: 18DEC07,02JAN08,16JAN08. TOTAL = 3 INFUSIONS. THERAPY DURATION - Q2
     Route: 042
     Dates: start: 20071218, end: 20080116
  2. PREDNISONE TAB [Concomitant]
  3. MINOCYCLINE HCL [Concomitant]
     Route: 048
  4. FLOVENT [Concomitant]
  5. MORPHINE [Concomitant]
  6. RANITIDINE HCL [Concomitant]
  7. DOMPERIDONE [Concomitant]
  8. NEXIUM [Concomitant]
  9. RAMIPRIL [Concomitant]
  10. ROFACT [Concomitant]
     Dosage: DOSAGE FORM = 50M.
  11. REACTINE [Concomitant]
  12. VENTOLIN [Concomitant]
  13. MORPHINE [Concomitant]

REACTIONS (9)
  - ASTHMA [None]
  - DYSPHONIA [None]
  - DYSPNOEA [None]
  - INFLUENZA [None]
  - PHARYNGOLARYNGEAL PAIN [None]
  - PRODUCTIVE COUGH [None]
  - RESPIRATORY TRACT CONGESTION [None]
  - TOOTH INFECTION [None]
  - WHEEZING [None]
